FAERS Safety Report 5314622-7 (Version None)
Quarter: 2007Q2

REPORT INFORMATION
  Report Type: 
  Country: None (occurrence: None)
  Receive Date: 20070427
  Receipt Date: 20070419
  Transmission Date: 20071010
  Serious: Yes (Life-Threatening)
  Sender: FDA-Public Use
  Company Number: 155468ISR

PATIENT
  Age: 58 Year
  Sex: Female

DRUGS (5)
  1. METHOTREXATE [Suspect]
     Indication: POLYARTHRITIS
     Dosage: (15 MG, 1 IN 1 WK); ORAL
     Route: 048
     Dates: start: 20020701, end: 20041206
  2. LEFLUNOMIDE [Suspect]
     Indication: POLYARTHRITIS
     Dosage: 10 MG (10 M, 1 IN 1 D); ORAL
     Route: 048
     Dates: start: 20050131
  3. HUMIRA [Suspect]
     Indication: POLYARTHRITIS
     Dosage: 40 MG, 2 IN 1 M); SUBCUTANEOUS
     Route: 058
     Dates: start: 20040722, end: 20070221
  4. FOLIC ACID [Suspect]
     Indication: POLYARTHRITIS
     Dosage: 10 MG (10 MG, 1 IN 1 D); ORAL
     Route: 048
     Dates: start: 20020701
  5. PREDNISONE TAB [Suspect]
     Indication: POLYARTHRITIS
     Dosage: 5 MG (5 MG, 1 IN 1 D); ORAL
     Route: 048
     Dates: start: 20020701

REACTIONS (5)
  - HYPOPHARYNGEAL CANCER [None]
  - LYMPHADENOPATHY [None]
  - LYMPHADENOPATHY MEDIASTINAL [None]
  - OESOPHAGEAL DISORDER [None]
  - TUMOUR INVASION [None]
